FAERS Safety Report 6330070-5 (Version None)
Quarter: 2009Q3

REPORT INFORMATION
  Report Type: 
  Country: None (occurrence: None)
  Receive Date: 20090827
  Receipt Date: 20070821
  Transmission Date: 20100115
  Serious: Yes (Hospitalization)
  Sender: FDA-Public Use
  Company Number: US-ASTRAZENECA-2006UW03306

PATIENT
  Age: 40 Year
  Sex: Female
  Weight: 104.3 kg

DRUGS (20)
  1. SEROQUEL [Suspect]
     Indication: DEPRESSION
     Dosage: 100 MG TO 200 MG
     Route: 048
     Dates: start: 20031114
  2. SEROQUEL [Suspect]
     Indication: INSOMNIA
     Dosage: 100 MG TO 200 MG
     Route: 048
     Dates: start: 20031114
  3. SEROQUEL [Suspect]
     Route: 048
     Dates: start: 20031119
  4. SEROQUEL [Suspect]
     Route: 048
     Dates: start: 20031119
  5. ABILIFY [Concomitant]
     Dates: start: 20031218, end: 20040101
  6. TRILAFON/TRIAVIL (PERPHENAZINE) [Concomitant]
     Dosage: 10-20 MG
  7. ZYPREXA/SYMBYAX (OLANZAPINE) [Concomitant]
     Dates: start: 20031001, end: 20031101
  8. EFFEXOR [Concomitant]
     Dates: start: 20020101
  9. EFFEXOR [Concomitant]
     Dates: start: 20031114
  10. METHADONE HCL [Concomitant]
     Dates: start: 19830101, end: 19860101
  11. ESKALITH [Concomitant]
  12. ESKALITH [Concomitant]
     Dosage: 450 CR TWICE A DAY
     Dates: start: 20031114
  13. DESYREL [Concomitant]
  14. PERCOCET [Concomitant]
     Dosage: 5/535 THREE TIMES A DAY
     Dates: start: 20070306
  15. SOMA [Concomitant]
     Indication: MUSCLE SPASMS
     Dates: start: 20030131
  16. ULTRACET [Concomitant]
     Dates: start: 20031202
  17. ZYPREXA [Concomitant]
     Dates: start: 20031114
  18. ACETAMINOPHEN W/ CODEINE [Concomitant]
     Dates: start: 20070124
  19. PREDNISONE TAB [Concomitant]
     Dates: start: 19970915
  20. ALBUTEROL [Concomitant]
     Dates: start: 20000604

REACTIONS (10)
  - BREAST MASS [None]
  - CELLULITIS [None]
  - EYE SWELLING [None]
  - GLUCOSE TOLERANCE IMPAIRED [None]
  - GLYCOSURIA [None]
  - OTITIS MEDIA [None]
  - SINUSITIS [None]
  - SWELLING FACE [None]
  - TYPE 2 DIABETES MELLITUS [None]
  - WEIGHT INCREASED [None]
